FAERS Safety Report 9360669 (Version 1)
Quarter: 2013Q2

REPORT INFORMATION
  Report Type: Spontaneous
  Country: US (occurrence: None)
  Receive Date: 20130620
  Receipt Date: 20130620
  Transmission Date: 20140414
  Serious: Yes (Other)
  Sender: FDA-Public Use
  Company Number: None

PATIENT
  Age: 71 Year
  Sex: Female
  Weight: 86 kg

DRUGS (1)
  1. FLECAINIDE [Suspect]
     Indication: ATRIAL FIBRILLATION
     Route: 048
     Dates: start: 20130618, end: 20130618

REACTIONS (4)
  - Eye swelling [None]
  - Swelling face [None]
  - Erythema [None]
  - Erythema [None]
